FAERS Safety Report 8641129 (Version 2)
Quarter: 2012Q4

REPORT INFORMATION
  Report Type: 
  Country: IE (occurrence: IE)
  Receive Date: 20120628
  Receipt Date: 20121017
  Transmission Date: 20130627
  Serious: Yes (Life-Threatening, Hospitalization)
  Sender: FDA-Public Use
  Company Number: IE-PFIZER INC-2012151630

PATIENT
  Age: 75 Year
  Sex: Male
  Weight: 65 kg

DRUGS (3)
  1. VFEND [Suspect]
     Indication: ASPERGILLOSIS
     Dosage: 400 mg, 2x/day (12 hourly)
     Route: 042
     Dates: start: 20120210, end: 20120210
  2. VFEND [Interacting]
     Indication: ASPERGILLOSIS
     Dosage: 200 mg, 2x/day
     Route: 048
     Dates: start: 20120211, end: 20120212
  3. LEVOFLOXACIN [Interacting]
     Dosage: 500 mg, alternate day (48 hourly)
     Route: 048
     Dates: start: 20120210, end: 20120213

REACTIONS (4)
  - Drug interaction [Recovered/Resolved]
  - Electrocardiogram QT interval abnormal [Recovered/Resolved]
  - Electrocardiogram T wave amplitude decreased [Recovered/Resolved]
  - Bradycardia [Recovered/Resolved]
